FAERS Safety Report 10978023 (Version 1)
Quarter: 2015Q1

REPORT INFORMATION
  Report Type: Spontaneous
  Country: None (occurrence: None)
  Receive Date: 20150226
  Receipt Date: 20150226
  Transmission Date: 20150721
  Serious: No
  Sender: FDA-Public Use
  Company Number: TPA2009A02374

PATIENT
  Sex: Male

DRUGS (4)
  1. NIASPAN (NICOTINIC ACID) [Concomitant]
  2. ANTI-HYPERTENSIVE MEDICATION (ANTIHYPERTENSIVES) [Concomitant]
  3. ULORIC [Suspect]
     Active Substance: FEBUXOSTAT
     Indication: GOUT
     Route: 048
     Dates: start: 200907, end: 200908
  4. CRESTOR [Concomitant]
     Active Substance: ROSUVASTATIN CALCIUM

REACTIONS (2)
  - Hyperhidrosis [None]
  - Influenza like illness [None]

NARRATIVE: CASE EVENT DATE: 200908
